FAERS Safety Report 24276871 (Version 1)
Quarter: 2024Q3

REPORT INFORMATION
  Report Type: Spontaneous
  Country: US (occurrence: US)
  Receive Date: 20240903
  Receipt Date: 20240903
  Transmission Date: 20241016
  Serious: Yes (Other)
  Sender: PERRIGO
  Company Number: US-PERRIGO-24US007893

PATIENT
  Age: 92 Year
  Sex: Female
  Weight: 58.957 kg

DRUGS (6)
  1. ACETAMINOPHEN [Suspect]
     Active Substance: ACETAMINOPHEN
     Indication: Myalgia
     Dosage: 1000 MG, SINGLE
     Route: 048
     Dates: start: 20240722, end: 20240722
  2. ACETAMINOPHEN [Suspect]
     Active Substance: ACETAMINOPHEN
     Dosage: 500 MG, SINGLE
     Route: 048
     Dates: start: 20240723, end: 20240723
  3. NPLATE [Concomitant]
     Active Substance: ROMIPLOSTIM
     Indication: Haemolytic anaemia
     Dosage: WEEKLY
     Route: 065
  4. PREDNISONE [Concomitant]
     Active Substance: PREDNISONE
     Indication: Organising pneumonia
     Dosage: 5 MG, QD
     Route: 065
  5. ALLOPURINOL [Concomitant]
     Active Substance: ALLOPURINOL
     Indication: Nephrolithiasis
     Dosage: UNKNOWN, UNKNOWN
     Route: 065
     Dates: start: 202406
  6. TRAMADOL [Concomitant]
     Active Substance: TRAMADOL\TRAMADOL HYDROCHLORIDE
     Indication: Myalgia
     Dosage: 1/2 TABLET, UNKNOWN
     Route: 048
     Dates: start: 202407, end: 202407

REACTIONS (1)
  - Hallucination, visual [Recovered/Resolved]

NARRATIVE: CASE EVENT DATE: 20240722
